FAERS Safety Report 5429238-1 (Version None)
Quarter: 2007Q3

REPORT INFORMATION
  Report Type: 
  Country: None (occurrence: None)
  Receive Date: 20070827
  Receipt Date: 20070827
  Transmission Date: 20080115
  Serious: Yes (Other)
  Sender: FDA-Public Use
  Company Number: None

PATIENT
  Age: 38 Year
  Sex: Female
  Weight: 79.3795 kg

DRUGS (1)
  1. DEPO-PROVERA [Suspect]
     Indication: CONTRACEPTION
     Dosage: ONE SHOT EVERY THREE MONTHS IM
     Route: 030
     Dates: start: 20051101, end: 20061101

REACTIONS (20)
  - ACNE [None]
  - AFFECT LABILITY [None]
  - CARDIOVASCULAR DISORDER [None]
  - DEPRESSION [None]
  - DIZZINESS [None]
  - FATIGUE [None]
  - HEADACHE [None]
  - HYPOTONIA [None]
  - IMPAIRED HEALING [None]
  - LIBIDO DECREASED [None]
  - MENORRHAGIA [None]
  - MOOD ALTERED [None]
  - NAUSEA [None]
  - PAIN [None]
  - PAIN IN EXTREMITY [None]
  - PHARMACEUTICAL PRODUCT COMPLAINT [None]
  - RASH [None]
  - VARICOSE VEIN [None]
  - VISION BLURRED [None]
  - WEIGHT INCREASED [None]
